FAERS Safety Report 24569639 (Version 1)
Quarter: 2024Q4

REPORT INFORMATION
  Report Type: Spontaneous
  Country: JP (occurrence: JP)
  Receive Date: 20241031
  Receipt Date: 20241031
  Transmission Date: 20250115
  Serious: Yes (Life-Threatening)
  Sender: LANTHEUS MEDICAL IMAGING
  Company Number: JP-LANTHEUS-LMI-2024-01318

PATIENT
  Age: 52 Year
  Sex: Female

DRUGS (6)
  1. CARDIOLITE [Suspect]
     Active Substance: TECHNETIUM TC-99M SESTAMIBI
     Indication: Renal failure
     Dosage: 259 OR 296 MEGABECQUEREL
     Route: 042
     Dates: start: 20241004, end: 20241004
  2. CARDIOLITE [Suspect]
     Active Substance: TECHNETIUM TC-99M SESTAMIBI
     Dosage: 740 MEGABECQUEREL
     Route: 042
     Dates: start: 20241004, end: 20241004
  3. ADENOSINE [Suspect]
     Active Substance: ADENOSINE
     Indication: Renal failure
     Dosage: UNK
     Route: 042
     Dates: start: 20241004, end: 20241004
  4. CILNIDIPINE [Concomitant]
     Active Substance: CILNIDIPINE
     Indication: Product used for unknown indication
     Dosage: UNK
  5. ESOMEPRAZOLE MAGNESIUM [Concomitant]
     Active Substance: ESOMEPRAZOLE MAGNESIUM
     Indication: Product used for unknown indication
     Dosage: UNK
  6. AMLODIPINE BESYLATE [Concomitant]
     Active Substance: AMLODIPINE BESYLATE
     Indication: Product used for unknown indication
     Dosage: UNK

REACTIONS (4)
  - Erythema [Recovering/Resolving]
  - Anaphylactic shock [Recovering/Resolving]
  - Blood pressure decreased [Recovering/Resolving]
  - Pruritus [Recovering/Resolving]

NARRATIVE: CASE EVENT DATE: 20241004
